FAERS Safety Report 20781931 (Version 1)
Quarter: 2022Q2

REPORT INFORMATION
  Report Type: Spontaneous
  Country: US (occurrence: US)
  Receive Date: 20220504
  Receipt Date: 20220504
  Transmission Date: 20220721
  Serious: Yes (Other)
  Sender: FDA-Public Use
  Company Number: US-LOTUS-2022-LOTUS-048753

PATIENT
  Age: 49 Year
  Sex: Female

DRUGS (3)
  1. METHOTREXATE [Suspect]
     Active Substance: METHOTREXATE
     Indication: Necrotising retinitis
     Route: 042
  2. GANCICLOVIR [Suspect]
     Active Substance: GANCICLOVIR
     Indication: Necrotising retinitis
  3. FOSCARNET [Suspect]
     Active Substance: FOSCARNET
     Indication: Necrotising retinitis

REACTIONS (4)
  - Hyphaema [Recovered/Resolved]
  - Vitreous haemorrhage [Recovered/Resolved]
  - Corneal epithelium defect [Recovered/Resolved]
  - Visual acuity reduced [Recovered/Resolved]
